FAERS Safety Report 6519360-0 (Version None)
Quarter: 2009Q4

REPORT INFORMATION
  Report Type: 
  Country: None (occurrence: None)
  Receive Date: 20091228
  Receipt Date: 20091218
  Transmission Date: 20100525
  Serious: Yes (Other)
  Sender: FDA-Public Use
  Company Number: GB-TEVA-218913ISR

PATIENT
  Age: 82 Year
  Sex: Male

DRUGS (1)
  1. RISPERIDONE [Suspect]
     Indication: AGITATION

REACTIONS (3)
  - EATING DISORDER [None]
  - HALLUCINATION [None]
  - MALAISE [None]
